FAERS Safety Report 19314507 (Version 1)
Quarter: 2021Q2

REPORT INFORMATION
  Report Type: Spontaneous
  Country: AT (occurrence: AT)
  Receive Date: 20210527
  Receipt Date: 20210527
  Transmission Date: 20210717
  Serious: Yes (Hospitalization)
  Sender: FDA-Public Use
  Company Number: AT-ACCORD-226084

PATIENT
  Age: 65 Year
  Sex: Male
  Weight: 85 kg

DRUGS (3)
  1. ATORVASTATIN/ATORVASTATIN CALCIUM [Suspect]
     Active Substance: ATORVASTATIN CALCIUM
     Indication: HYPERLIPIDAEMIA
     Dosage: 0?0?1 P.O. LONG?TERM THERAPY BREAK FROM 23?JAN?2021
     Dates: end: 20210123
  2. OSPEXINA [Concomitant]
     Indication: WOUND INFECTION
     Dosage: 1?1?1 P.O.
     Dates: start: 20201231, end: 20210121
  3. FUCIDIN [Suspect]
     Active Substance: FUSIDATE SODIUM
     Indication: WOUND INFECTION
     Dosage: 2?2?2 P.O.
     Dates: start: 20201231, end: 20210121

REACTIONS (3)
  - Rhabdomyolysis [Recovered/Resolved]
  - Muscular weakness [Recovered/Resolved]
  - Monoplegia [Recovered/Resolved]

NARRATIVE: CASE EVENT DATE: 20210108
